FAERS Safety Report 5371250-5 (Version None)
Quarter: 2007Q2

REPORT INFORMATION
  Report Type: 
  Country: None (occurrence: None)
  Receive Date: 20070615
  Receipt Date: 20070128
  Transmission Date: 20071010
  Serious: Yes (Other)
  Sender: FDA-Public Use
  Company Number: 200710636US

PATIENT
  Age: 60 Year
  Sex: Female

DRUGS (7)
  1. LANTUS [Suspect]
     Indication: DIABETES MELLITUS NON-INSULIN-DEPENDENT
     Dosage: 60 U
     Dates: start: 20061001
  2. OPTICLIK [Suspect]
     Indication: DIABETES MELLITUS NON-INSULIN-DEPENDENT
     Dates: start: 20061001
  3. METFORMIN HYDROCHLORIDE, GLIBENCLAMIDE (GLYBURIDE/METFORMIN) [Concomitant]
  4. METOPROLOL SUCCINATE [Concomitant]
  5. ENALAPRIL MALEATE [Concomitant]
  6. BUPROPION HCL [Concomitant]
  7. ASPIRIN [Concomitant]

REACTIONS (4)
  - BLOOD GLUCOSE INCREASED [None]
  - DRUG INEFFECTIVE [None]
  - FEELING ABNORMAL [None]
  - HYPOGLYCAEMIC UNCONSCIOUSNESS [None]
